FAERS Safety Report 4942912-6 (Version None)
Quarter: 2006Q1

REPORT INFORMATION
  Report Type: 
  Country: None (occurrence: None)
  Receive Date: 20060309
  Receipt Date: 20060221
  Transmission Date: 20060701
  Serious: Yes (Other)
  Sender: FDA-Public Use
  Company Number: B0412659A

PATIENT
  Age: 42 Year
  Sex: Male

DRUGS (1)
  1. EPIVIR [Suspect]
     Indication: HEPATITIS B
     Dosage: 100 MG PER DAY ORAL
     Route: 048
     Dates: start: 19960101

REACTIONS (1)
  - NEPHROLITHIASIS [None]
